FAERS Safety Report 24839884 (Version 1)
Quarter: 2025Q1

REPORT INFORMATION
  Report Type: Spontaneous
  Country: CA (occurrence: CA)
  Receive Date: 20250114
  Receipt Date: 20250114
  Transmission Date: 20250408
  Serious: Yes (Other)
  Sender: HIKMA
  Company Number: CA-HIKMA PHARMACEUTICALS-CA-H14001-25-00053

PATIENT
  Age: 41 Year
  Sex: Male

DRUGS (21)
  1. CAPECITABINE [Suspect]
     Active Substance: CAPECITABINE
     Indication: Parathyroid tumour malignant
     Route: 065
  2. CAPECITABINE [Suspect]
     Active Substance: CAPECITABINE
     Indication: Lung neoplasm
  3. CAPECITABINE [Suspect]
     Active Substance: CAPECITABINE
     Indication: Hepatic cancer
  4. CISPLATIN [Suspect]
     Active Substance: CISPLATIN
     Indication: Parathyroid tumour malignant
     Route: 042
  5. CISPLATIN [Suspect]
     Active Substance: CISPLATIN
     Indication: Lung neoplasm
  6. CISPLATIN [Suspect]
     Active Substance: CISPLATIN
     Indication: Hepatic cancer
  7. DENOSUMAB [Suspect]
     Active Substance: DENOSUMAB
     Indication: Parathyroid tumour malignant
     Route: 058
  8. DENOSUMAB [Suspect]
     Active Substance: DENOSUMAB
     Indication: Lung neoplasm
  9. DENOSUMAB [Suspect]
     Active Substance: DENOSUMAB
     Indication: Hepatic cancer
  10. ETOPOSIDE [Suspect]
     Active Substance: ETOPOSIDE
     Indication: Parathyroid tumour malignant
     Route: 065
  11. ETOPOSIDE [Suspect]
     Active Substance: ETOPOSIDE
     Indication: Lung neoplasm
  12. ETOPOSIDE [Suspect]
     Active Substance: ETOPOSIDE
     Indication: Hepatic cancer
  13. NEXAVAR [Suspect]
     Active Substance: SORAFENIB
     Indication: Parathyroid tumour malignant
     Route: 065
  14. NEXAVAR [Suspect]
     Active Substance: SORAFENIB
     Indication: Lung neoplasm
  15. NEXAVAR [Suspect]
     Active Substance: SORAFENIB
     Indication: Hepatic cancer
  16. TEMOZOLOMIDE [Suspect]
     Active Substance: TEMOZOLOMIDE
     Indication: Parathyroid tumour malignant
     Route: 065
  17. TEMOZOLOMIDE [Suspect]
     Active Substance: TEMOZOLOMIDE
     Indication: Lung neoplasm
  18. TEMOZOLOMIDE [Suspect]
     Active Substance: TEMOZOLOMIDE
     Indication: Hepatic cancer
  19. ZOLEDRONIC ACID [Suspect]
     Active Substance: ZOLEDRONIC ACID
     Indication: Parathyroid tumour malignant
     Route: 065
  20. ZOLEDRONIC ACID [Suspect]
     Active Substance: ZOLEDRONIC ACID
     Indication: Lung neoplasm
  21. ZOLEDRONIC ACID [Suspect]
     Active Substance: ZOLEDRONIC ACID
     Indication: Hepatic cancer

REACTIONS (7)
  - Blood bilirubin increased [Unknown]
  - Diarrhoea [Unknown]
  - Hepatic encephalopathy [Unknown]
  - Metastases to liver [Unknown]
  - Metastases to lymph nodes [Unknown]
  - Metastases to peritoneum [Unknown]
  - Parathyroid tumour malignant [Unknown]
